FAERS Safety Report 6471163-1 (Version None)
Quarter: 2009Q4

REPORT INFORMATION
  Report Type: 
  Country: None (occurrence: None)
  Receive Date: 20091203
  Receipt Date: 20080325
  Transmission Date: 20100525
  Serious: No
  Sender: FDA-Public Use
  Company Number: US-ELI_LILLY_AND_COMPANY-US200802001316

PATIENT
  Sex: Male

DRUGS (3)
  1. ZYPREXA [Suspect]
     Indication: AGITATION
     Dosage: 10 MG, UNK
     Route: 042
     Dates: start: 20080204
  2. FERRO-SEQUELS [Concomitant]
     Dosage: UNK, 2/D
  3. PROTONIX [Concomitant]
     Dosage: 40 MG, DAILY (1/D)

REACTIONS (6)
  - BLOOD GLUCOSE INCREASED [None]
  - BLOOD UREA INCREASED [None]
  - HAEMATOCRIT INCREASED [None]
  - MEDICATION ERROR [None]
  - RED BLOOD CELL COUNT DECREASED [None]
  - SEDATION [None]
